FAERS Safety Report 20625563 (Version 1)
Quarter: 2022Q1

REPORT INFORMATION
  Report Type: Spontaneous
  Country: US (occurrence: None)
  Receive Date: 20220323
  Receipt Date: 20220323
  Transmission Date: 20220423
  Serious: Yes (Other)
  Sender: FDA-Public Use
  Company Number: US-ROCHE-2977160

PATIENT
  Age: 97 Year
  Sex: Female
  Weight: 54.480 kg

DRUGS (1)
  1. ERIVEDGE [Suspect]
     Active Substance: VISMODEGIB
     Indication: Multiple congenital abnormalities
     Dosage: THERAPY ONGOING: YES
     Route: 065

REACTIONS (1)
  - Fatigue [Unknown]

NARRATIVE: CASE EVENT DATE: 20211208
